FAERS Safety Report 17856912 (Version 2)
Quarter: 2020Q4

REPORT INFORMATION
  Report Type: Report from Study
  Country: CO (occurrence: CO)
  Receive Date: 20200603
  Receipt Date: 20201026
  Transmission Date: 20210113
  Serious: Yes (Other)
  Sender: FDA-Public Use
  Company Number: NVSC2020CO088539

PATIENT
  Sex: Male
  Weight: 63 kg

DRUGS (6)
  1. TASIGNA [Suspect]
     Active Substance: NILOTINIB
     Dosage: 400 MG, QD
     Route: 048
  2. TASIGNA [Suspect]
     Active Substance: NILOTINIB
     Indication: CHRONIC MYELOID LEUKAEMIA
     Dosage: 800 MG, QD
     Route: 048
  3. LOSARTAN. [Suspect]
     Active Substance: LOSARTAN
     Indication: HYPERTENSION
     Dosage: UNK
     Route: 048
  4. LOSARTAN. [Suspect]
     Active Substance: LOSARTAN
     Dosage: 50 MG, QD
     Route: 048
  5. LEVOTHYROXINE. [Concomitant]
     Active Substance: LEVOTHYROXINE
     Indication: THYROID DISORDER
     Dosage: UNK UNK, QD
     Route: 048
  6. TASIGNA [Suspect]
     Active Substance: NILOTINIB
     Dosage: 600 MG, BID
     Route: 048
     Dates: end: 20200311

REACTIONS (16)
  - Speech disorder [Unknown]
  - Feeling abnormal [Unknown]
  - Oral contusion [Unknown]
  - Renal cyst [Unknown]
  - Tongue paralysis [Unknown]
  - Illness [Unknown]
  - Dizziness [Unknown]
  - Swelling [Unknown]
  - Swelling face [Unknown]
  - Poor quality sleep [Unknown]
  - Swollen tongue [Unknown]
  - Dysphagia [Unknown]
  - Headache [Unknown]
  - General physical health deterioration [Unknown]
  - Tongue disorder [Unknown]
  - Vertigo [Unknown]
